FAERS Safety Report 5158102-0 (Version None)
Quarter: 2006Q4

REPORT INFORMATION
  Report Type: 
  Country: None (occurrence: None)
  Receive Date: 20061117
  Receipt Date: 20061106
  Transmission Date: 20070319
  Serious: Yes (Other)
  Sender: FDA-Public Use
  Company Number: 2006134863

PATIENT
  Age: 62 Year
  Sex: Male

DRUGS (6)
  1. ATARAX-P (IV/IM) (HYDROXYZINE HYDROCHLORIDE) [Suspect]
     Indication: PROCEDURAL PAIN
     Dosage: INTRAMUSCULAR
     Route: 030
     Dates: start: 20061026, end: 20061101
  2. VOLTAREN [Suspect]
     Indication: PROCEDURAL PAIN
     Dosage: RECTAL
     Route: 054
     Dates: start: 20061026
  3. PENTAZOCINE HYDROCHLORIDE (PENTAZOCINE HYDROCHLORIDE) [Suspect]
     Indication: PROCEDURAL PAIN
     Dosage: INTRAMUSCULAR
     Route: 030
     Dates: start: 20061026, end: 20061101
  4. ROPIVACAINE HYDROCHLORIDE (ROPIVACAINE HYDROCHLORIDE) [Suspect]
     Indication: PROCEDURAL PAIN
     Dosage: EPIDURAL
     Route: 008
     Dates: start: 20061026, end: 20061101
  5. VANCOMYCIN [Suspect]
     Indication: INFECTION PROPHYLAXIS
     Dosage: 2 GRAM (1 GRAM, 2 IN 1), INTRAVENOUS
     Route: 042
     Dates: start: 20061026, end: 20061102
  6. OMEPRAZOLE [Concomitant]

REACTIONS (2)
  - HYPOGLYCAEMIA [None]
  - MUSCULAR WEAKNESS [None]
